FAERS Safety Report 14638433 (Version 1)
Quarter: 2018Q1

REPORT INFORMATION
  Report Type: Report from Study
  Country: US (occurrence: US)
  Receive Date: 20180314
  Receipt Date: 20180314
  Transmission Date: 20180509
  Serious: Yes (Other)
  Sender: FDA-Public Use
  Company Number: US-BRISTOL-MYERS SQUIBB COMPANY-BMS-2018-001403

PATIENT
  Sex: Male

DRUGS (1)
  1. NIVOLUMAB [Suspect]
     Active Substance: NIVOLUMAB
     Indication: HEAD AND NECK CANCER
     Dosage: UNK
     Route: 042

REACTIONS (10)
  - Headache [Unknown]
  - Vision blurred [Unknown]
  - Cystitis [Unknown]
  - Dyspnoea [Unknown]
  - Chromaturia [Unknown]
  - Urine output decreased [Unknown]
  - Decreased appetite [Unknown]
  - Asthenia [Unknown]
  - Pollakiuria [Unknown]
  - Bone pain [Unknown]
